FAERS Safety Report 9604349 (Version 1)
Quarter: 2013Q4

REPORT INFORMATION
  Report Type: Report from Study
  Country: BR (occurrence: BR)
  Receive Date: 20131008
  Receipt Date: 20131008
  Transmission Date: 20140711
  Serious: Yes (Hospitalization, Other)
  Sender: FDA-Public Use
  Company Number: PHHY2013BR108375

PATIENT
  Age: 35 Year
  Sex: Female
  Weight: 57 kg

DRUGS (3)
  1. FORASEQ [Suspect]
     Dosage: UNK
  2. ONBREZ [Suspect]
     Indication: CHRONIC OBSTRUCTIVE PULMONARY DISEASE
     Dosage: 150 UG, QD
     Dates: start: 201201
  3. ONBREZ [Suspect]
     Dosage: 300 UNK, UNK

REACTIONS (15)
  - Chronic obstructive pulmonary disease [Unknown]
  - Infective exacerbation of chronic obstructive airways disease [Unknown]
  - Dyspnoea [Unknown]
  - Cough [Unknown]
  - Wheezing [Unknown]
  - Peak expiratory flow rate decreased [Unknown]
  - Obstructive airways disorder [Unknown]
  - Nasal turbinate hypertrophy [Unknown]
  - Maximal voluntary ventilation decreased [Unknown]
  - Skin plaque [Unknown]
  - Emphysema [Unknown]
  - Cyst [Unknown]
  - Ventricular hypokinesia [Unknown]
  - Urticaria [Unknown]
  - Angioedema [Unknown]
